FAERS Safety Report 8348831-X (Version None)
Quarter: 2012Q2

REPORT INFORMATION
  Report Type: 
  Country: None (occurrence: None)
  Receive Date: 20120508
  Receipt Date: 20120302
  Transmission Date: 20120825
  Serious: Yes (Other)
  Sender: FDA-Public Use
  Company Number: 2012SA015051

PATIENT
  Age: 54 Year
  Sex: Female

DRUGS (3)
  1. SOLU-MEDROL [Concomitant]
  2. DILAUDID [Concomitant]
  3. ACT TOTAL CARE DRY MOUTH MINT [Suspect]
     Dates: start: 20111123, end: 20111126

REACTIONS (8)
  - GLOSSODYNIA [None]
  - DYSGEUSIA [None]
  - LACERATION [None]
  - PAIN [None]
  - OBSTRUCTIVE AIRWAYS DISORDER [None]
  - SWOLLEN TONGUE [None]
  - DYSPNOEA [None]
  - TONGUE DISORDER [None]
